FAERS Safety Report 6292779-1 (Version None)
Quarter: 2009Q3

REPORT INFORMATION
  Report Type: 
  Country: None (occurrence: None)
  Receive Date: 20090731
  Receipt Date: 20090728
  Transmission Date: 20100115
  Serious: Yes (Death)
  Sender: FDA-Public Use
  Company Number: US-ASTRAZENECA-2009SE06166

PATIENT
  Age: 17187 Day
  Sex: Male

DRUGS (1)
  1. PULMICORT-100 [Suspect]
     Route: 055

REACTIONS (1)
  - CARDIAC FAILURE CONGESTIVE [None]
